FAERS Safety Report 13247489 (Version 1)
Quarter: 2017Q1

REPORT INFORMATION
  Report Type: Spontaneous
  Country: CH (occurrence: CH)
  Receive Date: 20170217
  Receipt Date: 20170217
  Transmission Date: 20170428
  Serious: Yes (Other)
  Sender: FDA-Public Use
  Company Number: CH-BAXALTA-2017BLT001223

PATIENT
  Age: 30 Year
  Sex: Male

DRUGS (2)
  1. ADYNOVI [Suspect]
     Active Substance: ANTIHEMOPHILIC FACTOR, HUMAN RECOMBINANT
     Indication: HAEMOPHILIA
     Dosage: UNK
     Route: 065
     Dates: start: 2016
  2. ADVATE [Suspect]
     Active Substance: ANTIHEMOPHILIC FACTOR, HUMAN RECOMBINANT
     Indication: HAEMOPHILIA
     Dosage: UNK
     Route: 065
     Dates: end: 2016

REACTIONS (3)
  - Paraesthesia [Unknown]
  - Multiple sclerosis [Unknown]
  - Demyelination [Unknown]

NARRATIVE: CASE EVENT DATE: 201701
